FAERS Safety Report 8203739-5 (Version None)
Quarter: 2012Q1

REPORT INFORMATION
  Report Type: 
  Country: None (occurrence: None)
  Receive Date: 20120308
  Receipt Date: 20120229
  Transmission Date: 20120608
  Serious: Yes (Other)
  Sender: FDA-Public Use
  Company Number: DSA_55286_2012

PATIENT
  Age: 20 Year
  Sex: Female
  Weight: 62.5964 kg

DRUGS (4)
  1. LEXAPRO [Suspect]
     Dosage: (DF)
  2. VIIBRYD [Suspect]
     Dosage: (DF)
  3. WELLBUTRIN XL [Suspect]
     Dosage: (300 MG,    )
     Dates: start: 20120201
  4. AMBIEN [Suspect]
     Dosage: (DF)

REACTIONS (1)
  - CONVULSION [None]
